FAERS Safety Report 5522562-3 (Version None)
Quarter: 2007Q4

REPORT INFORMATION
  Report Type: 
  Country: None (occurrence: None)
  Receive Date: 20071120
  Receipt Date: 20071108
  Transmission Date: 20080405
  Serious: Yes (Other)
  Sender: FDA-Public Use
  Company Number: US-PFIZER INC-2007083782

PATIENT
  Sex: Female
  Weight: 118.18 kg

DRUGS (16)
  1. NEURONTIN [Suspect]
  2. LYRICA [Interacting]
     Indication: NERVE INJURY
     Dates: start: 20070821, end: 20070927
  3. ALTACE [Interacting]
  4. ALLEGRA D 24 HOUR [Concomitant]
  5. BYETTA [Concomitant]
  6. ALL OTHER THERAPEUTIC PRODUCTS [Concomitant]
  7. TROSPIUM CHLORIDE [Concomitant]
  8. POTASSIUM CHLORIDE [Concomitant]
  9. HYDROCHLOROTHIAZIDE [Concomitant]
  10. TIZANIDINE HCL [Concomitant]
  11. ZETIA [Concomitant]
  12. NASONEX [Concomitant]
  13. NEXIUM [Concomitant]
  14. PATANOL [Concomitant]
  15. ALBUTEROL [Concomitant]
  16. NABUMETONE [Concomitant]

REACTIONS (18)
  - BLEPHARITIS [None]
  - BLISTER [None]
  - BREAST DISCHARGE [None]
  - CHILLS [None]
  - DRUG INEFFECTIVE [None]
  - DRUG INTERACTION [None]
  - ERYTHEMA [None]
  - HYPERSENSITIVITY [None]
  - MALAISE [None]
  - POOR QUALITY SLEEP [None]
  - PRURITUS [None]
  - RASH [None]
  - RASH MACULAR [None]
  - SKIN EXFOLIATION [None]
  - SKIN LESION [None]
  - SWELLING FACE [None]
  - UNEVALUABLE EVENT [None]
  - URTICARIA [None]
